FAERS Safety Report 21635260 (Version 1)
Quarter: 2022Q4

REPORT INFORMATION
  Report Type: Spontaneous
  Country: US (occurrence: US)
  Receive Date: 20221123
  Receipt Date: 20221123
  Transmission Date: 20230112
  Serious: No
  Sender: FDA-Public Use
  Company Number: US-NOVOPROD-872211

PATIENT
  Sex: Female

DRUGS (1)
  1. INSULIN ASPART [Suspect]
     Active Substance: INSULIN ASPART
     Indication: Product used for unknown indication
     Dosage: 15 IU
     Route: 058
     Dates: start: 202110

REACTIONS (1)
  - Anal pruritus [Not Recovered/Not Resolved]

NARRATIVE: CASE EVENT DATE: 20211001
